FAERS Safety Report 9586135 (Version 1)
Quarter: 2013Q4

REPORT INFORMATION
  Report Type: Spontaneous
  Country: US (occurrence: US)
  Receive Date: 20131003
  Receipt Date: 20131003
  Transmission Date: 20140711
  Serious: Yes (Hospitalization)
  Sender: FDA-Public Use
  Company Number: US-ELI_LILLY_AND_COMPANY-US201309007571

PATIENT
  Age: 40 Year
  Sex: Female

DRUGS (8)
  1. CYMBALTA [Suspect]
     Dosage: UNK, UNKNOWN
     Route: 065
  2. FLOLAN [Suspect]
     Indication: PULMONARY ARTERIAL HYPERTENSION
     Dosage: 19 NG, OTHER
     Route: 065
     Dates: start: 20030821
  3. FLOLAN [Suspect]
     Dosage: 19 NG, OTHER
     Route: 065
  4. FLOLAN [Suspect]
     Dosage: 19 NG, OTHER
     Route: 065
  5. FLOLAN [Suspect]
     Dosage: 19 NG, OTHER
     Route: 065
  6. FLOLAN [Suspect]
     Dosage: 19 NG, OTHER
     Route: 065
  7. ZOFRAN                             /00955301/ [Concomitant]
     Dosage: UNK, UNKNOWN
     Route: 065
  8. IMODIUM [Concomitant]
     Dosage: UNK, UNKNOWN
     Route: 065

REACTIONS (16)
  - Medical device complication [Recovered/Resolved]
  - Device breakage [Recovered/Resolved]
  - Fibromyalgia [Unknown]
  - Arthritis [Unknown]
  - Urinary tract infection [Unknown]
  - Sleep terror [Unknown]
  - Oral discomfort [Unknown]
  - Hot flush [Unknown]
  - Nausea [Unknown]
  - Diarrhoea [Unknown]
  - Vomiting [Unknown]
  - Feeling abnormal [Unknown]
  - Hyperhidrosis [Unknown]
  - Weight decreased [Unknown]
  - Insomnia [Unknown]
  - Drug withdrawal syndrome [Unknown]
